FAERS Safety Report 4624324-8 (Version None)
Quarter: 2005Q1

REPORT INFORMATION
  Report Type: 
  Country: None (occurrence: None)
  Receive Date: 20050330
  Receipt Date: 20050330
  Transmission Date: 20050727
  Serious: Yes (Other)
  Sender: FDA-Public Use
  Company Number: None

PATIENT
  Age: 81 Year
  Sex: Male

DRUGS (7)
  1. ULTRAVIST 370 [Suspect]
     Dosage: 125 CC IV
     Route: 042
  2. WARFARIN SODIUM [Concomitant]
  3. HYDROCHLOROTHIAZIDE [Concomitant]
  4. IMDUR [Concomitant]
  5. PROCARDIA [Concomitant]
  6. VICODIN [Concomitant]
  7. NITROGLYCERIN [Concomitant]

REACTIONS (5)
  - BLOOD PRESSURE DECREASED [None]
  - FATIGUE [None]
  - PERIORBITAL OEDEMA [None]
  - PRURITUS [None]
  - SNEEZING [None]
